FAERS Safety Report 12139464 (Version 2)
Quarter: 2016Q2

REPORT INFORMATION
  Report Type: Spontaneous
  Country: US (occurrence: US)
  Receive Date: 20160303
  Receipt Date: 20160413
  Transmission Date: 20160815
  Serious: Yes (Life-Threatening, Hospitalization, Disabling)
  Sender: FDA-Public Use
  Company Number: US-009507513-1602USA011382

PATIENT
  Age: 27 Year
  Sex: Female

DRUGS (5)
  1. MICAFUNGIN [Concomitant]
     Active Substance: MICAFUNGIN
     Dosage: UNKNOWN
  2. VANCOMYCIN [Concomitant]
     Active Substance: VANCOMYCIN
     Dosage: UNKNOWN
  3. INVANZ [Suspect]
     Active Substance: ERTAPENEM SODIUM
     Indication: ABDOMINAL INFECTION
     Dosage: 1 G, UNK
     Route: 042
     Dates: start: 20160211, end: 20160221
  4. INVANZ [Suspect]
     Active Substance: ERTAPENEM SODIUM
     Dosage: 2 G, UNK
     Route: 042
     Dates: start: 20160222
  5. NYSTATIN. [Concomitant]
     Active Substance: NYSTATIN
     Dosage: UNKNOWN

REACTIONS (1)
  - Escherichia infection [Unknown]

NARRATIVE: CASE EVENT DATE: 201602
